FAERS Safety Report 4559448-7 (Version None)
Quarter: 2005Q1

REPORT INFORMATION
  Report Type: 
  Country: None (occurrence: None)
  Receive Date: 20050119
  Receipt Date: 20041220
  Transmission Date: 20050727
  Serious: Yes (Hospitalization, Other)
  Sender: FDA-Public Use
  Company Number: DE-2004-037410

PATIENT
  Age: 33 Year
  Sex: Female
  Weight: 48 kg

DRUGS (3)
  1. BETAFERON(INTERFERON BETA - 1B) INJECTION, 250MICROGRAM [Suspect]
     Indication: MULTIPLE SCLEROSIS
     Dosage: 8 MIU, EVERY 2D, SUBCUTANEOUS
     Route: 058
     Dates: start: 20040301, end: 20040901
  2. IBUHEXAL [Concomitant]
  3. LIORESAL [Concomitant]

REACTIONS (13)
  - ALANINE AMINOTRANSFERASE INCREASED [None]
  - ASPARTATE AMINOTRANSFERASE INCREASED [None]
  - BLOOD LACTATE DEHYDROGENASE INCREASED [None]
  - BLOOD URIC ACID INCREASED [None]
  - DISEASE RECURRENCE [None]
  - EMPHYSEMATOUS BULLA [None]
  - HYPOTHYROIDISM [None]
  - MICROCYTIC ANAEMIA [None]
  - MYCOBACTERIUM KANSASII PNEUMONIA [None]
  - OBSTRUCTIVE AIRWAYS DISORDER [None]
  - SARCOIDOSIS [None]
  - SECONDARY IMMUNODEFICIENCY [None]
  - TUBERCULOSIS [None]
